FAERS Safety Report 10365206 (Version 1)
Quarter: 2014Q3

REPORT INFORMATION
  Report Type: Spontaneous
  Country: KR (occurrence: KR)
  Receive Date: 20140806
  Receipt Date: 20140806
  Transmission Date: 20150326
  Serious: Yes (Other)
  Sender: FDA-Public Use
  Company Number: PHHY2014KR093900

PATIENT
  Age: 62 Year
  Sex: Male
  Weight: 66 kg

DRUGS (21)
  1. TRAMADOL [Interacting]
     Active Substance: TRAMADOL
     Indication: PROCEDURAL PAIN
     Dosage: 100 MG, UNK
     Route: 042
  2. PROPOFOL. [Concomitant]
     Active Substance: PROPOFOL
     Indication: ANAESTHESIA
     Dosage: 2 MG/KG, UNK
     Route: 042
  3. FENTANYL. [Interacting]
     Active Substance: FENTANYL
     Indication: ANALGESIC THERAPY
     Dosage: 1000 UG, UNK
  4. PHENYLEPHRINE [Concomitant]
     Active Substance: PHENYLEPHRINE\PHENYLEPHRINE HYDROCHLORIDE
     Dosage: 80 UG, UNK
     Route: 041
  5. NORMAL SALINE [Concomitant]
     Active Substance: SODIUM CHLORIDE
     Dosage: 950 ML, UNK
  6. ESCITALOPRAM [Suspect]
     Active Substance: ESCITALOPRAM OXALATE
     Indication: TRAUMATIC INTRACRANIAL HAEMORRHAGE
  7. KETOROLAC [Interacting]
     Active Substance: KETOROLAC\KETOROLAC TROMETHAMINE
     Indication: ANALGESIC THERAPY
  8. SEVOFLURANE. [Concomitant]
     Active Substance: SEVOFLURANE
     Indication: ANAESTHESIA
  9. ROCURONIUM [Concomitant]
     Active Substance: ROCURONIUM BROMIDE
     Dosage: 15 MG WAS INJECTED EVERY HOUR
  10. CLONAZEPAM. [Concomitant]
     Active Substance: CLONAZEPAM
     Indication: TREMOR
  11. FENTANYL. [Interacting]
     Active Substance: FENTANYL
     Dosage: 0.3 UG/KG/H
     Route: 041
  12. GLYCOPYRROLATE. [Concomitant]
     Active Substance: GLYCOPYRROLATE
     Dosage: 0.4 MG, UNK
     Route: 042
  13. BUSPIRONE [Concomitant]
     Active Substance: BUSPIRONE HYDROCHLORIDE
     Indication: ANXIETY
  14. EPHEDRINE [Concomitant]
     Active Substance: EPHEDRINE
     Dosage: 10 MG, UNK
     Route: 041
  15. PYRIDOSTIGMINE [Concomitant]
     Active Substance: PYRIDOSTIGMINE
     Dosage: 15 MG, UNK
     Route: 042
  16. QUETIAPINE [Concomitant]
     Active Substance: QUETIAPINE
     Indication: SLEEP DISORDER
  17. TRAMADOL [Interacting]
     Active Substance: TRAMADOL
     Indication: PAIN
     Dosage: 100 MG, UNK
     Route: 030
  18. TRAMADOL [Interacting]
     Active Substance: TRAMADOL
     Dosage: TRAMADOL 100 MG AND NORMAL SALINE 100 ML OVER 10 MINUTES
     Route: 042
  19. FENTANYL. [Interacting]
     Active Substance: FENTANYL
     Dosage: 0.15 UG/KG/H
     Route: 040
  20. REMIFENTANIL [Concomitant]
     Active Substance: REMIFENTANIL
     Indication: ANAESTHESIA
     Dosage: 200 UG/HR, UNK
     Route: 041
  21. ROCURONIUM [Concomitant]
     Active Substance: ROCURONIUM BROMIDE
     Indication: ANAESTHESIA
     Dosage: 0.8 MG/KG, UNK
     Route: 042

REACTIONS (13)
  - Serotonin syndrome [Unknown]
  - Depressed level of consciousness [Unknown]
  - Heart rate increased [Unknown]
  - Gaze palsy [Unknown]
  - Clonus [Unknown]
  - Tachycardia [Unknown]
  - Dizziness [Unknown]
  - Drug interaction [Unknown]
  - Unresponsive to stimuli [Unknown]
  - Convulsion [Unknown]
  - Headache [Unknown]
  - Nausea [Unknown]
  - Tremor [Unknown]
